FAERS Safety Report 7207039-1 (Version None)
Quarter: 2011Q1

REPORT INFORMATION
  Report Type: 
  Country: None (occurrence: None)
  Receive Date: 20110103
  Receipt Date: 20101220
  Transmission Date: 20110831
  Serious: Yes (Death, Hospitalization)
  Sender: FDA-Public Use
  Company Number: B0687800A

PATIENT
  Age: 28 Year
  Sex: Female

DRUGS (1)
  1. LAMOTRIGINE [Suspect]
     Route: 065

REACTIONS (12)
  - CONFUSIONAL STATE [None]
  - ABDOMINAL PAIN UPPER [None]
  - NAUSEA [None]
  - HEPATIC ENZYME INCREASED [None]
  - BLOOD PRESSURE ABNORMAL [None]
  - PROTHROMBIN TIME PROLONGED [None]
  - HEPATIC FAILURE [None]
  - INTERNATIONAL NORMALISED RATIO INCREASED [None]
  - ABDOMINAL PAIN [None]
  - JAUNDICE [None]
  - DECREASED APPETITE [None]
  - AMMONIA INCREASED [None]
